FAERS Safety Report 5727122-7 (Version None)
Quarter: 2008Q2

REPORT INFORMATION
  Report Type: 
  Country: None (occurrence: None)
  Receive Date: 20080505
  Receipt Date: 20080425
  Transmission Date: 20081010
  Serious: Yes (Disabling, Other)
  Sender: FDA-Public Use
  Company Number: GB-BAYER-200810423BNE

PATIENT
  Age: 61 Year
  Sex: Female
  Weight: 114 kg

DRUGS (1)
  1. MIRENA [Suspect]
     Indication: ENDOMETRIAL HYPERPLASIA
     Route: 015
     Dates: start: 20050210, end: 20050318

REACTIONS (3)
  - PRURITUS [None]
  - RASH [None]
  - URTICARIA [None]
